FAERS Safety Report 6229663-5 (Version None)
Quarter: 2009Q2

REPORT INFORMATION
  Report Type: 
  Country: None (occurrence: None)
  Receive Date: 20090615
  Receipt Date: 20090610
  Transmission Date: 20091009
  Serious: Yes (Hospitalization)
  Sender: FDA-Public Use
  Company Number: B0578290A

PATIENT
  Age: 56 Year
  Sex: Male

DRUGS (3)
  1. AUGMENTIN [Suspect]
     Indication: INFLUENZA
     Dosage: 1G TWICE PER DAY
     Route: 048
     Dates: start: 20090406, end: 20090406
  2. RHINOFLUIMUCIL [Concomitant]
     Indication: DRUG USE FOR UNKNOWN INDICATION
     Route: 065
  3. IBUPROFENE [Concomitant]
     Indication: DRUG USE FOR UNKNOWN INDICATION
     Route: 065

REACTIONS (7)
  - ANAPHYLACTOID SHOCK [None]
  - HYPOTENSION [None]
  - LIP OEDEMA [None]
  - MALAISE [None]
  - NAUSEA [None]
  - TONGUE OEDEMA [None]
  - URTICARIA [None]
